FAERS Safety Report 6835413-1 (Version None)
Quarter: 2010Q2

REPORT INFORMATION
  Report Type: 
  Country: None (occurrence: None)
  Receive Date: 20100520
  Receipt Date: 20091123
  Transmission Date: 20101027
  Serious: Yes (Other)
  Sender: FDA-Public Use
  Company Number: 2009214522

PATIENT
  Age: 46 Year
  Sex: Female
  Weight: 91 kg

DRUGS (8)
  1. MEDROXYPROGESTERONE ACETATE [Suspect]
     Indication: HORMONE REPLACEMENT THERAPY
     Dosage: 10 MG, ORAL
     Route: 048
     Dates: start: 19951001, end: 20010301
  2. PREMARIN [Suspect]
     Indication: HORMONE REPLACEMENT THERAPY
     Dosage: 0.9 MG ; 1.25 MG ; 0.625 MG
     Dates: start: 19951001, end: 19980701
  3. PREMARIN [Suspect]
     Indication: HORMONE REPLACEMENT THERAPY
     Dosage: 0.9 MG ; 1.25 MG ; 0.625 MG
     Dates: start: 19980701, end: 20020201
  4. PREMARIN [Suspect]
     Indication: HORMONE REPLACEMENT THERAPY
     Dosage: 0.9 MG ; 1.25 MG ; 0.625 MG
     Dates: start: 20020201, end: 20020901
  5. MEDROXYPROGESTERONE ACETATE [Suspect]
     Indication: HORMONE REPLACEMENT THERAPY
     Dosage: 2.5 MG
     Dates: start: 20010301, end: 20030901
  6. PAXIL [Concomitant]
  7. LEVOTHYROXINE SODIUM [Concomitant]
  8. PRAVACHOL [Concomitant]

REACTIONS (1)
  - BREAST CANCER FEMALE [None]
